FAERS Safety Report 11801726 (Version 1)
Quarter: 2015Q4

REPORT INFORMATION
  Report Type: Spontaneous
  Country: None (occurrence: None)
  Receive Date: 20151203
  Receipt Date: 20151203
  Transmission Date: 20160305
  Serious: Yes (Life-Threatening, Hospitalization)
  Sender: FDA-Public Use
  Company Number: None

PATIENT
  Age: 56 Year
  Sex: Male
  Weight: 81.6 kg

DRUGS (4)
  1. IOVERSOL (OPTIRAY) [Concomitant]
  2. NORMAL SALINE [Concomitant]
     Active Substance: SODIUM CHLORIDE
  3. ONDANSETRON [Concomitant]
     Active Substance: ONDANSETRON
  4. COMPAZINE [Suspect]
     Active Substance: PROCHLORPERAZINE MALEATE
     Indication: HICCUPS
     Route: 030
     Dates: start: 20151202, end: 20151202

REACTIONS (4)
  - Swelling face [None]
  - Pharyngeal oedema [None]
  - Lip swelling [None]
  - Angioedema [None]

NARRATIVE: CASE EVENT DATE: 20151202
